FAERS Safety Report 8025235-0 (Version None)
Quarter: 2012Q1

REPORT INFORMATION
  Report Type: 
  Country: None (occurrence: None)
  Receive Date: 20120105
  Receipt Date: 20111230
  Transmission Date: 20120608
  Serious: Yes (Hospitalization, Other)
  Sender: FDA-Public Use
  Company Number: US-ABBOTT-11P-163-0887229-00

PATIENT
  Sex: Male
  Weight: 104.42 kg

DRUGS (4)
  1. HYDROCODONE [Concomitant]
     Indication: PAIN
  2. HUMIRA [Suspect]
     Indication: CROHN'S DISEASE
     Dosage: 4 INJECTIONS INITIAL DOSE
     Dates: start: 20111215, end: 20111215
  3. CHOLESTYRAMINE [Concomitant]
     Indication: DIARRHOEA
  4. ONDANSETRON [Concomitant]
     Indication: NAUSEA

REACTIONS (6)
  - CHEST DISCOMFORT [None]
  - DIZZINESS [None]
  - HEART RATE IRREGULAR [None]
  - NAUSEA [None]
  - HYPOAESTHESIA [None]
  - PAIN IN EXTREMITY [None]
